FAERS Safety Report 14224117 (Version 1)
Quarter: 2017Q4

REPORT INFORMATION
  Report Type: Spontaneous
  Country: US (occurrence: US)
  Receive Date: 20171125
  Receipt Date: 20171125
  Transmission Date: 20180321
  Serious: Yes (Disabling)
  Sender: FDA-Public Use
  Company Number: None

PATIENT
  Age: 47 Year
  Sex: Female
  Weight: 58.5 kg

DRUGS (8)
  1. ZYRTEC [Concomitant]
     Active Substance: CETIRIZINE HYDROCHLORIDE
  2. VITALIFE GUMMY VITAMINS [Concomitant]
  3. METHYLPHENIDATE ER [Suspect]
     Active Substance: METHYLPHENIDATE
     Indication: ATTENTION DEFICIT/HYPERACTIVITY DISORDER
     Dosage: ?          QUANTITY:60 TABLET(S);?
     Route: 048
     Dates: start: 20171022, end: 20171124
  4. LITHIUM. [Concomitant]
     Active Substance: LITHIUM
  5. IMITREX [Concomitant]
     Active Substance: SUMATRIPTAN SUCCINATE
  6. VASOTEC [Concomitant]
     Active Substance: ENALAPRIL MALEATE
  7. AMILIORIDE [Concomitant]
     Active Substance: AMILORIDE
  8. PROBIOMOOD PROBIOTICS [Concomitant]

REACTIONS (6)
  - Mental impairment [None]
  - Vision blurred [None]
  - Fatigue [None]
  - Influenza [None]
  - Dizziness [None]
  - Cognitive disorder [None]

NARRATIVE: CASE EVENT DATE: 20171124
